FAERS Safety Report 7938382-6 (Version None)
Quarter: 2011Q4

REPORT INFORMATION
  Report Type: 
  Country: None (occurrence: None)
  Receive Date: 20111123
  Receipt Date: 20111116
  Transmission Date: 20120403
  Serious: Yes (Hospitalization)
  Sender: FDA-Public Use
  Company Number: US-GLAXOSMITHKLINE-A0808170A

PATIENT
  Age: 53 Year
  Sex: Male

DRUGS (2)
  1. AVANDIA [Suspect]
     Indication: DIABETES MELLITUS
     Dosage: 4MG PER DAY
     Route: 048
     Dates: start: 20000501, end: 20040801
  2. AVANDAMET [Suspect]
     Indication: DIABETES MELLITUS
     Route: 065
     Dates: start: 20031025, end: 20041024

REACTIONS (6)
  - CARDIAC FAILURE CONGESTIVE [None]
  - CORONARY ARTERY DISEASE [None]
  - ARTERIOSCLEROSIS CORONARY ARTERY [None]
  - MYOCARDIAL INFARCTION [None]
  - ISCHAEMIC CARDIOMYOPATHY [None]
  - EMOTIONAL DISTRESS [None]
